FAERS Safety Report 8771395 (Version 1)
Quarter: 2012Q4

REPORT INFORMATION
  Report Type: 
  Country: US (occurrence: US)
  Receive Date: 20120906
  Receipt Date: 20120906
  Transmission Date: 20130627
  Serious: Yes (Hospitalization)
  Sender: FDA-Public Use
  Company Number: US-GLAXOSMITHKLINE-A0992173A

PATIENT
  Age: 61 Year
  Sex: Male

DRUGS (5)
  1. FLOLAN [Suspect]
     Indication: PRODUCT USED FOR UNKNOWN INDICATION
     Dosage: 10NGKM Continuous
     Route: 042
     Dates: start: 20110210
  2. TRACLEER [Concomitant]
  3. FUROSEMIDE [Concomitant]
  4. DILTIAZEM [Concomitant]
  5. ECOTRIN [Concomitant]

REACTIONS (2)
  - Device related infection [Unknown]
  - Central venous catheterisation [Unknown]
